FAERS Safety Report 9043494 (Version 1)
Quarter: 2013Q1

REPORT INFORMATION
  Report Type: Report from Study
  Country: US (occurrence: US)
  Receive Date: 20130129
  Receipt Date: 20130129
  Transmission Date: 20140127
  Serious: No
  Sender: FDA-Public Use
  Company Number: US-ABBOTT-12P-163-0909443-00

PATIENT
  Age: 18 Year
  Sex: Female

DRUGS (6)
  1. HUMIRA 40 MG/0.8 ML PEN [Suspect]
     Indication: CROHN^S DISEASE
     Dates: start: 20111231
  2. IRON [Concomitant]
     Indication: BLOOD IRON DECREASED
  3. PRILOSEC OTC [Concomitant]
     Indication: DYSPEPSIA
     Dosage: IN THE MORNING
     Route: 048
  4. CLARITIN [Concomitant]
     Indication: HYPERSENSITIVITY
     Dosage: 10 MG DAILY
     Route: 048
  5. PENTASA [Concomitant]
     Indication: CROHN^S DISEASE
     Dosage: 500 MG X2 TABLETS, 4 TIMES DAILY
     Route: 048
     Dates: start: 201111
  6. BENTYL [Concomitant]
     Indication: CROHN^S DISEASE
     Route: 048
     Dates: start: 201112

REACTIONS (6)
  - Acne [Not Recovered/Not Resolved]
  - Depression [Not Recovered/Not Resolved]
  - Amnesia [Not Recovered/Not Resolved]
  - Cognitive disorder [Not Recovered/Not Resolved]
  - Acne [Not Recovered/Not Resolved]
  - Insomnia [Not Recovered/Not Resolved]
